FAERS Safety Report 6754813-1 (Version None)
Quarter: 2010Q2

REPORT INFORMATION
  Report Type: 
  Country: None (occurrence: None)
  Receive Date: 20100603
  Receipt Date: 20100527
  Transmission Date: 20101027
  Serious: Yes (Hospitalization)
  Sender: FDA-Public Use
  Company Number: US-GILEAD-2010-0028157

PATIENT
  Sex: Male
  Weight: 76.272 kg

DRUGS (18)
  1. LETAIRIS [Suspect]
     Indication: PULMONARY ARTERIAL HYPERTENSION
     Route: 048
     Dates: start: 20071214
  2. ASPIRIN [Concomitant]
  3. SPIRONOLACTONE [Concomitant]
  4. FUROSEMIDE [Concomitant]
  5. METOLAZONE [Concomitant]
  6. COREG [Concomitant]
  7. PRAVASTATIN [Concomitant]
  8. TYVASO [Concomitant]
  9. PRANDIN [Concomitant]
  10. CASODEX [Concomitant]
  11. AVODART [Concomitant]
  12. TRELSTAR [Concomitant]
  13. COLCHICINE [Concomitant]
  14. METAMUCIL-2 [Concomitant]
  15. MULTI-VITAMIN [Concomitant]
  16. POTASSIUM CHLORIDE [Concomitant]
  17. FEOSOL [Concomitant]
  18. ICAPS [Concomitant]

REACTIONS (1)
  - CEREBROVASCULAR ACCIDENT [None]
